FAERS Safety Report 7898021-X (Version None)
Quarter: 2011Q4

REPORT INFORMATION
  Report Type: 
  Country: None (occurrence: None)
  Receive Date: 20111107
  Receipt Date: 20111107
  Transmission Date: 20120403
  Serious: Yes (Hospitalization)
  Sender: FDA-Public Use
  Company Number: None

PATIENT
  Sex: Female
  Weight: 78.017 kg

DRUGS (2)
  1. FOSAMAX [Suspect]
     Indication: OSTEOPENIA
     Dosage: 70 MG.
     Route: 048
     Dates: start: 19970101, end: 20041230
  2. ALENDRONATE SODIUM [Concomitant]
     Indication: OSTEOPENIA
     Dosage: 70 MG.
     Route: 048
     Dates: start: 20041231, end: 20110811

REACTIONS (1)
  - FEMUR FRACTURE [None]
